FAERS Safety Report 6210494-7 (Version None)
Quarter: 2009Q2

REPORT INFORMATION
  Report Type: 
  Country: None (occurrence: None)
  Receive Date: 20090601
  Receipt Date: 20090522
  Transmission Date: 20091009
  Serious: Yes (Hospitalization)
  Sender: FDA-Public Use
  Company Number: A0785878A

PATIENT
  Age: 19 Year
  Sex: Female

DRUGS (7)
  1. LAMICTAL [Suspect]
     Indication: BIPOLAR DISORDER
     Dosage: 200MG PER DAY
     Route: 048
     Dates: start: 20080601
  2. WELLBUTRIN SR [Suspect]
     Indication: DEPRESSION
     Dosage: 300MG IN THE MORNING
     Route: 048
     Dates: start: 20080101, end: 20090520
  3. UNKNOWN [Concomitant]
  4. ABILIFY [Concomitant]
  5. PRISTIQ [Concomitant]
     Dates: start: 20090521
  6. TRILEPTAL [Concomitant]
     Dates: end: 20090501
  7. GEODON [Concomitant]
     Dates: end: 20080501

REACTIONS (3)
  - AMNESIA [None]
  - DEPRESSION [None]
  - DISTURBANCE IN ATTENTION [None]
